FAERS Safety Report 8067722 (Version 5)
Quarter: 2013Q2

REPORT INFORMATION
  Report Type: Report from Study
  Country: BR (occurrence: BR)
  Receive Date: 20110803
  Receipt Date: 20130422
  Transmission Date: 20140414
  Serious: Yes (Other)
  Sender: FDA-Public Use
  Company Number: PHHY2011BR68238

PATIENT
  Sex: Female
  Weight: 68 kg

DRUGS (1)
  1. TRILEPTAL [Suspect]
     Indication: DEPRESSION
     Dosage: 300 MG, UNK
     Route: 048

REACTIONS (10)
  - Diabetes mellitus [Not Recovered/Not Resolved]
  - Nephrolithiasis [Not Recovered/Not Resolved]
  - Urinary retention [Not Recovered/Not Resolved]
  - Exposure during pregnancy [Unknown]
  - Dizziness [Recovered/Resolved]
  - Agitation [Recovered/Resolved]
  - Nausea [Not Recovered/Not Resolved]
  - Tremor [Recovered/Resolved]
  - Somnolence [Unknown]
  - Nervousness [Unknown]
